FAERS Safety Report 17163688 (Version 4)
Quarter: 2020Q1

REPORT INFORMATION
  Report Type: Spontaneous
  Country: FR (occurrence: FR)
  Receive Date: 20191217
  Receipt Date: 20200323
  Transmission Date: 20200409
  Serious: Yes (Other)
  Sender: FDA-Public Use
  Company Number: FR-TEVA-2019-FR-1153925

PATIENT
  Sex: Female
  Weight: 40 kg

DRUGS (7)
  1. CYMBALTA [Concomitant]
     Active Substance: DULOXETINE HYDROCHLORIDE
     Indication: NEURALGIA
     Route: 048
  2. LAMALINE [Concomitant]
     Indication: MIGRAINE
     Route: 054
  3. VERAPAMIL TEVA 40 MG [Suspect]
     Active Substance: VERAPAMIL HYDROCHLORIDE
     Indication: HEADACHE
     Dosage: 2 DOSAGE FORMS DAILY;
     Route: 048
  4. LAMALINE [Concomitant]
     Route: 054
  5. VERAPAMIL TEVA 40 MG [Suspect]
     Active Substance: VERAPAMIL HYDROCHLORIDE
     Indication: MUSCLE SPASMS
     Dosage: 1 DOSAGE FORMS DAILY;
     Route: 048
     Dates: start: 2000
  6. LEXOMIL [Concomitant]
     Active Substance: BROMAZEPAM
     Indication: ANXIETY
     Dosage: 12 MILLIGRAM DAILY;
     Route: 048
  7. TIGREAT [Concomitant]
     Active Substance: FROVATRIPTAN
     Indication: MIGRAINE
     Dosage: 1 DF IN CASE OF CRISIS
     Route: 048

REACTIONS (21)
  - Renal cyst [Unknown]
  - Monoclonal gammopathy [Unknown]
  - Hepatic pain [Unknown]
  - Drug effective for unapproved indication [Unknown]
  - Heart rate decreased [Unknown]
  - Noninfective gingivitis [Not Recovered/Not Resolved]
  - Gingival discomfort [Unknown]
  - Gingival pain [Unknown]
  - Decreased appetite [Unknown]
  - Gallbladder disorder [Unknown]
  - Headache [Unknown]
  - Nervousness [Unknown]
  - Tremor [Not Recovered/Not Resolved]
  - Nausea [Recovered/Resolved]
  - Intentional product misuse [Unknown]
  - Bone marrow leukaemic cell infiltration [Unknown]
  - Nephrolithiasis [Unknown]
  - Myalgia [Unknown]
  - Product use in unapproved indication [Unknown]
  - Abdominal pain [Unknown]
  - Hyperproteinaemia [Unknown]

NARRATIVE: CASE EVENT DATE: 2008
